FAERS Safety Report 21964047 (Version 2)
Quarter: 2023Q1

REPORT INFORMATION
  Report Type: Report from Study
  Country: US (occurrence: US)
  Receive Date: 20230207
  Receipt Date: 20230314
  Transmission Date: 20230417
  Serious: Yes (Death)
  Sender: FDA-Public Use
  Company Number: US-JNJFOC-20230209126

PATIENT
  Age: 43 Year
  Sex: Male
  Weight: 119.86 kg

DRUGS (62)
  1. SPRAVATO [Suspect]
     Active Substance: ESKETAMINE
     Indication: Depression
     Dosage: ^56 MG, 2 TOTAL DOSES^, START DATE WAS ALSO REPORTED AS 28-FEB-2020.
     Dates: start: 20200323, end: 20200326
  2. SPRAVATO [Suspect]
     Active Substance: ESKETAMINE
     Indication: Major depression
     Dosage: ^84 MG, 12 TOTAL DOSES^
     Dates: start: 20200331, end: 20200519
  3. SPRAVATO [Suspect]
     Active Substance: ESKETAMINE
     Dosage: ^56 MG, 1 TOTAL DOSE^
     Dates: start: 20200522, end: 20200522
  4. SPRAVATO [Suspect]
     Active Substance: ESKETAMINE
     Dosage: ^84 MG, 251 TOTAL DOSES^
     Dates: start: 20200526, end: 20230112
  5. SPRAVATO [Suspect]
     Active Substance: ESKETAMINE
     Dosage: ^84 MG, 1 TOTAL DOSE^
     Dates: start: 20230117, end: 20230117
  6. ABILIFY MAINTENA [Concomitant]
     Active Substance: ARIPIPRAZOLE
     Dosage: 2ML INTRAMUSCULAR
     Route: 030
     Dates: start: 20191001, end: 20220926
  7. ABILIFY MAINTENA [Concomitant]
     Active Substance: ARIPIPRAZOLE
     Route: 048
     Dates: start: 20190702, end: 20190716
  8. ABILIFY MAINTENA [Concomitant]
     Active Substance: ARIPIPRAZOLE
     Route: 048
     Dates: start: 20190716, end: 20190729
  9. ABILIFY MAINTENA [Concomitant]
     Active Substance: ARIPIPRAZOLE
     Route: 048
     Dates: start: 20190729, end: 20190827
  10. ABILIFY MAINTENA [Concomitant]
     Active Substance: ARIPIPRAZOLE
     Route: 048
     Dates: start: 20190827, end: 20191001
  11. ABILIFY MAINTENA [Concomitant]
     Active Substance: ARIPIPRAZOLE
     Route: 048
     Dates: start: 20191029, end: 20200122
  12. ABILIFY MAINTENA [Concomitant]
     Active Substance: ARIPIPRAZOLE
     Route: 048
     Dates: start: 20210510, end: 20210706
  13. ABILIFY MAINTENA [Concomitant]
     Active Substance: ARIPIPRAZOLE
     Route: 065
     Dates: start: 20210706, end: 20220906
  14. ALPRAZOLAM [Concomitant]
     Active Substance: ALPRAZOLAM
     Route: 065
     Dates: start: 20220712, end: 20220926
  15. ALPRAZOLAM [Concomitant]
     Active Substance: ALPRAZOLAM
     Route: 048
     Dates: start: 20220926, end: 20221020
  16. ALPRAZOLAM [Concomitant]
     Active Substance: ALPRAZOLAM
     Route: 048
     Dates: start: 20211209, end: 20220117
  17. ALPRAZOLAM [Concomitant]
     Active Substance: ALPRAZOLAM
     Route: 048
     Dates: start: 20220117, end: 20220712
  18. CHLORPROMAZINE [Concomitant]
     Active Substance: CHLORPROMAZINE
     Dosage: AT BEDTIME
     Route: 048
     Dates: start: 20221129, end: 20221219
  19. CHLORPROMAZINE [Concomitant]
     Active Substance: CHLORPROMAZINE
     Dosage: AT BEDTIME
     Route: 048
     Dates: start: 20221219, end: 20221219
  20. CLONIDINE HYDROCHLORIDE [Concomitant]
     Active Substance: CLONIDINE HYDROCHLORIDE
     Route: 048
     Dates: start: 20221017, end: 20221020
  21. CLONIDINE HYDROCHLORIDE [Concomitant]
     Active Substance: CLONIDINE HYDROCHLORIDE
     Route: 048
     Dates: start: 20221020, end: 20221212
  22. CLONIDINE HYDROCHLORIDE [Concomitant]
     Active Substance: CLONIDINE HYDROCHLORIDE
     Route: 065
     Dates: start: 20221212, end: 20230111
  23. CLONIDINE HYDROCHLORIDE [Concomitant]
     Active Substance: CLONIDINE HYDROCHLORIDE
     Route: 065
     Dates: start: 20230111, end: 20230111
  24. FLUOXETINE [Concomitant]
     Active Substance: FLUOXETINE HYDROCHLORIDE
     Route: 048
     Dates: start: 20221031, end: 20221128
  25. FLUOXETINE [Concomitant]
     Active Substance: FLUOXETINE HYDROCHLORIDE
     Route: 048
     Dates: start: 20221128, end: 20230112
  26. FLUOXETINE [Concomitant]
     Active Substance: FLUOXETINE HYDROCHLORIDE
     Route: 048
     Dates: start: 20221219, end: 20221219
  27. GABAPENTIN [Concomitant]
     Active Substance: GABAPENTIN
     Dosage: 2 CAPSULES, 3 TIMES A DAY
     Route: 048
     Dates: start: 20221020, end: 20221212
  28. OLANZAPINE [Concomitant]
     Active Substance: OLANZAPINE
     Dosage: AT BEDTIME
     Route: 048
     Dates: start: 20201005, end: 20201005
  29. PROPRANOLOL [Concomitant]
     Active Substance: PROPRANOLOL HYDROCHLORIDE
     Route: 048
     Dates: start: 20200417, end: 20200907
  30. PROPRANOLOL [Concomitant]
     Active Substance: PROPRANOLOL HYDROCHLORIDE
     Route: 048
     Dates: start: 20200907, end: 20200928
  31. PROPRANOLOL [Concomitant]
     Active Substance: PROPRANOLOL HYDROCHLORIDE
     Route: 048
     Dates: start: 20200928, end: 20220801
  32. PROPRANOLOL [Concomitant]
     Active Substance: PROPRANOLOL HYDROCHLORIDE
     Route: 065
     Dates: start: 20220801, end: 20220801
  33. VYVANSE [Concomitant]
     Active Substance: LISDEXAMFETAMINE DIMESYLATE
     Route: 048
     Dates: start: 20221214, end: 20230112
  34. CLONAZEPAM [Concomitant]
     Active Substance: CLONAZEPAM
     Route: 048
     Dates: start: 20200928, end: 20211209
  35. CLONAZEPAM [Concomitant]
     Active Substance: CLONAZEPAM
     Route: 065
     Dates: start: 20211230, end: 20220117
  36. CLONAZEPAM [Concomitant]
     Active Substance: CLONAZEPAM
     Route: 065
     Dates: start: 20220213, end: 20221020
  37. DEXTROAMPHETAMINE [Concomitant]
     Active Substance: DEXTROAMPHETAMINE
     Route: 048
     Dates: start: 20221020, end: 20221119
  38. DEXTROAMPHETAMINE [Concomitant]
     Active Substance: DEXTROAMPHETAMINE
     Route: 048
     Dates: start: 20221119, end: 20221214
  39. ESCITALOPRAM OXALATE [Concomitant]
     Active Substance: ESCITALOPRAM OXALATE
     Dosage: EVERY EVENING
     Route: 048
     Dates: start: 20200219, end: 20221020
  40. HYDROXYZINE PAMOATE [Concomitant]
     Active Substance: HYDROXYZINE PAMOATE
     Route: 065
     Dates: start: 20200616, end: 20200928
  41. KETAMINE [Concomitant]
     Active Substance: KETAMINE
     Dosage: 100 MG/ML
     Route: 065
     Dates: start: 20200514, end: 20200928
  42. KETAMINE [Concomitant]
     Active Substance: KETAMINE
     Dosage: 1 TROCHE UNDER TONGUE
     Route: 065
     Dates: start: 20200928, end: 20210920
  43. KETAMINE [Concomitant]
     Active Substance: KETAMINE
     Dosage: 100 MG/ML
     Route: 065
     Dates: start: 20210920, end: 20221020
  44. LAMOTRIGINE [Concomitant]
     Active Substance: LAMOTRIGINE
     Route: 048
     Dates: start: 20190917, end: 20191001
  45. LAMOTRIGINE [Concomitant]
     Active Substance: LAMOTRIGINE
     Route: 048
     Dates: start: 20191001, end: 20191015
  46. LAMOTRIGINE [Concomitant]
     Active Substance: LAMOTRIGINE
     Route: 048
     Dates: start: 20191015, end: 20200928
  47. LYRICA [Concomitant]
     Active Substance: PREGABALIN
     Route: 048
     Dates: start: 20190702, end: 20190716
  48. LYRICA [Concomitant]
     Active Substance: PREGABALIN
     Route: 048
     Dates: start: 20190716, end: 20190802
  49. LYRICA [Concomitant]
     Active Substance: PREGABALIN
     Route: 048
     Dates: start: 20190802, end: 20190827
  50. LYRICA [Concomitant]
     Active Substance: PREGABALIN
     Route: 048
     Dates: start: 20190827, end: 20191001
  51. LYRICA [Concomitant]
     Active Substance: PREGABALIN
     Route: 048
     Dates: start: 20191001, end: 20200924
  52. PRAZOSIN [Concomitant]
     Active Substance: PRAZOSIN
     Dosage: AT BEDTIME
     Route: 048
     Dates: start: 20191001, end: 20191113
  53. PRAZOSIN [Concomitant]
     Active Substance: PRAZOSIN
     Route: 048
     Dates: start: 20191113, end: 20200122
  54. PRAZOSIN [Concomitant]
     Active Substance: PRAZOSIN
     Route: 048
     Dates: start: 20200122, end: 20200624
  55. PRAZOSIN [Concomitant]
     Active Substance: PRAZOSIN
     Route: 065
     Dates: start: 20200624, end: 20200921
  56. PRAZOSIN [Concomitant]
     Active Substance: PRAZOSIN
     Route: 048
     Dates: start: 20200921, end: 20220310
  57. PRAZOSIN [Concomitant]
     Active Substance: PRAZOSIN
     Dosage: AT BEDTIME
     Route: 048
     Dates: start: 20220310, end: 20221017
  58. QUETIAPINE [Concomitant]
     Active Substance: QUETIAPINE
     Route: 048
     Dates: start: 20190827, end: 20191001
  59. QUETIAPINE [Concomitant]
     Active Substance: QUETIAPINE
     Route: 048
     Dates: start: 20191001, end: 20200122
  60. QUETIAPINE [Concomitant]
     Active Substance: QUETIAPINE
     Route: 048
     Dates: start: 20200122, end: 20200601
  61. QUETIAPINE [Concomitant]
     Active Substance: QUETIAPINE
     Route: 048
     Dates: start: 20200601, end: 20200928
  62. REXULTI [Concomitant]
     Active Substance: BREXPIPRAZOLE
     Route: 065
     Dates: end: 20221020

REACTIONS (1)
  - Overdose [Fatal]
